FAERS Safety Report 9658377 (Version 2)
Quarter: 2013Q4

REPORT INFORMATION
  Report Type: Spontaneous
  Country: US (occurrence: US)
  Receive Date: 20131030
  Receipt Date: 20131030
  Transmission Date: 20140711
  Serious: No
  Sender: FDA-Public Use
  Company Number: US-PURDUE-USA-2012-0081330

PATIENT
  Age: 53 Year
  Sex: Male

DRUGS (1)
  1. OXYCONTIN (NDA 22-272) [Suspect]
     Indication: SPINAL PAIN
     Dosage: 80 MG, BID
     Dates: start: 2011

REACTIONS (3)
  - Pain [Unknown]
  - Drug effect decreased [Unknown]
  - Drug hypersensitivity [Unknown]
